FAERS Safety Report 11364766 (Version 1)
Quarter: 2015Q3

REPORT INFORMATION
  Report Type: Other
  Country: IN (occurrence: IN)
  Receive Date: 20150811
  Receipt Date: 20150811
  Transmission Date: 20151125
  Serious: Yes (Hospitalization)
  Sender: FDA-Public Use
  Company Number: IN-ENDO PHARMACEUTICALS INC-2015-002186

PATIENT
  Age: 24 Year
  Sex: Female

DRUGS (6)
  1. TRIHEXYPHENIDYL HYDROCHLORIDE TABLETS 2MG [Suspect]
     Active Substance: TRIHEXYPHENIDYL HYDROCHLORIDE
     Indication: SCHIZOPHRENIA, PARANOID TYPE
     Route: 065
  2. LORAZEPAM. [Suspect]
     Active Substance: LORAZEPAM
     Indication: MENTAL RETARDATION
     Route: 065
  3. TRIHEXYPHENIDYL HYDROCHLORIDE TABLETS 2MG [Suspect]
     Active Substance: TRIHEXYPHENIDYL HYDROCHLORIDE
     Indication: MENTAL RETARDATION
     Route: 065
  4. LORAZEPAM. [Suspect]
     Active Substance: LORAZEPAM
     Indication: SCHIZOPHRENIA, PARANOID TYPE
     Route: 065
  5. RISPERIDONE. [Suspect]
     Active Substance: RISPERIDONE
     Indication: SCHIZOPHRENIA, PARANOID TYPE
     Route: 065
  6. RISPERIDONE. [Suspect]
     Active Substance: RISPERIDONE
     Indication: MENTAL RETARDATION

REACTIONS (1)
  - Neuroleptic malignant syndrome [Recovering/Resolving]
